FAERS Safety Report 4780899-X (Version None)
Quarter: 2005Q3

REPORT INFORMATION
  Report Type: 
  Country: None (occurrence: None)
  Receive Date: 20050926
  Receipt Date: 20050926
  Transmission Date: 20060218
  Serious: Yes (Hospitalization)
  Sender: FDA-Public Use
  Company Number: None

PATIENT
  Sex: Male
  Weight: 84.8226 kg

DRUGS (19)
  1. GATAFLOXACIN 400 MG [Suspect]
     Indication: BRONCHITIS ACUTE
     Dosage: 400 MG QD PO
     Route: 048
     Dates: start: 20050920, end: 20050927
  2. ALBUTEROL NEB [Concomitant]
  3. ATROVENT NEB [Concomitant]
  4. FLOVENT [Concomitant]
  5. FORADIL [Concomitant]
  6. OMEPRAZOLE [Concomitant]
  7. HYDROCHLOROTHIAZIDE [Concomitant]
  8. LISINOPRIL [Concomitant]
  9. SIMVASTATIN [Concomitant]
  10. GEMFIBROZIL [Concomitant]
  11. SINGULAIR [Concomitant]
  12. DOXEPIN HCL [Concomitant]
  13. ALENDRONATE [Concomitant]
  14. CALCIUM GLUCONATE [Concomitant]
  15. ASPIRIN [Concomitant]
  16. PREDNISONE [Concomitant]
  17. FELODIPINE [Concomitant]
  18. GLUCOSAMINE [Concomitant]
  19. GLIPIZIDE [Concomitant]

REACTIONS (3)
  - BLOOD GLUCOSE DECREASED [None]
  - HYPERHIDROSIS [None]
  - MENTAL STATUS CHANGES [None]
